FAERS Safety Report 24921614 (Version 3)
Quarter: 2025Q1

REPORT INFORMATION
  Report Type: Spontaneous
  Country: JP (occurrence: JP)
  Receive Date: 20250204
  Receipt Date: 20250304
  Transmission Date: 20250409
  Serious: Yes (Hospitalization)
  Sender: ALEXION PHARMACEUTICALS
  Company Number: JP-ASTRAZENECA-250009107_032320_P_1

PATIENT
  Age: 64 Year

DRUGS (9)
  1. SAPHNELO [Suspect]
     Active Substance: ANIFROLUMAB-FNIA
     Indication: Systemic lupus erythematosus
  2. SAPHNELO [Suspect]
     Active Substance: ANIFROLUMAB-FNIA
  3. PREDONINE [Concomitant]
     Active Substance: PREDNISOLONE
     Route: 065
  4. RABEPRAZOLE SODIUM [Concomitant]
     Active Substance: RABEPRAZOLE SODIUM
     Route: 065
  5. MINODRONIC ACID [Concomitant]
     Active Substance: MINODRONIC ACID
     Route: 065
  6. TACROLIMUS [Concomitant]
     Active Substance: TACROLIMUS
     Route: 065
  7. METHOTREXATE [Concomitant]
     Active Substance: METHOTREXATE
     Route: 065
  8. FOLIC ACID [Concomitant]
     Active Substance: FOLIC ACID
     Route: 065
  9. REFLEX [Concomitant]
     Active Substance: MIRTAZAPINE
     Route: 065

REACTIONS (2)
  - Malaise [Recovering/Resolving]
  - Influenza [Recovering/Resolving]
